FAERS Safety Report 8832354 (Version 1)
Quarter: 2012Q4

REPORT INFORMATION
  Report Type: 
  Country: US (occurrence: US)
  Receive Date: 20121009
  Receipt Date: 20121009
  Transmission Date: 20130627
  Serious: Yes (Other)
  Sender: FDA-Public Use
  Company Number: PHHY2012US087365

PATIENT
  Age: 73 Year
  Sex: Male

DRUGS (1)
  1. BUFFERIN REGULAR STRENGTH [Suspect]
     Indication: MIGRAINE
     Dosage: 2 DF, UNK
     Dates: start: 1957

REACTIONS (10)
  - Confusional state [Recovered/Resolved]
  - Concussion [Unknown]
  - Osteoporosis [Not Recovered/Not Resolved]
  - Sight disability [Recovered/Resolved]
  - Lyme disease [Not Recovered/Not Resolved]
  - Migraine [Not Recovered/Not Resolved]
  - Hypertension [Not Recovered/Not Resolved]
  - Arthropod bite [Not Recovered/Not Resolved]
  - Headache [Not Recovered/Not Resolved]
  - Incorrect drug administration duration [Unknown]
